FAERS Safety Report 7783243-9 (Version None)
Quarter: 2011Q3

REPORT INFORMATION
  Report Type: 
  Country: None (occurrence: None)
  Receive Date: 20110928
  Receipt Date: 20110916
  Transmission Date: 20111222
  Serious: Yes (Hospitalization)
  Sender: FDA-Public Use
  Company Number: FR-SANOFI-AVENTIS-2011SA060346

PATIENT
  Age: 95 Year
  Sex: Female
  Weight: 38 kg

DRUGS (9)
  1. DIFFU K [Concomitant]
     Route: 048
     Dates: start: 20110614
  2. ASPIRIN [Suspect]
     Indication: MYOCARDIAL INFARCTION
     Route: 048
     Dates: start: 20110614
  3. CALCIPARINE [Suspect]
     Indication: ATRIAL FIBRILLATION
     Route: 058
     Dates: start: 20110704
  4. PRAVASTATIN [Concomitant]
     Route: 048
     Dates: start: 20110614
  5. PANTOPRAZOLE [Concomitant]
     Route: 048
     Dates: start: 20110614
  6. LASIX [Suspect]
     Route: 048
     Dates: start: 20110614
  7. CALCIPARINE [Suspect]
     Route: 058
     Dates: start: 20110704
  8. PLAVIX [Suspect]
     Indication: MYOCARDIAL INFARCTION
     Route: 048
     Dates: start: 20110614, end: 20110717
  9. BISOPROLOL FUMARATE [Concomitant]
     Route: 048
     Dates: start: 20110614

REACTIONS (3)
  - ANAEMIA [None]
  - RENAL FAILURE ACUTE [None]
  - HAEMATOMA [None]
